FAERS Safety Report 8001900-6 (Version None)
Quarter: 2011Q4

REPORT INFORMATION
  Report Type: 
  Country: None (occurrence: None)
  Receive Date: 20111222
  Receipt Date: 20111219
  Transmission Date: 20120403
  Serious: Yes (Hospitalization, Other)
  Sender: FDA-Public Use
  Company Number: BR-ABBOTT-08P-020-0477811-00

PATIENT
  Sex: Female
  Weight: 71 kg

DRUGS (16)
  1. IODOTHERAPY [Concomitant]
     Indication: GOITRE
     Dates: start: 20060101, end: 20060101
  2. UNKNOWN MEDICATION [Concomitant]
     Indication: RHEUMATOID ARTHRITIS
  3. LEVOTHYROXINE SODIUM [Concomitant]
     Indication: HYPOTHYROIDISM
     Route: 048
     Dates: start: 20090101
  4. HUMIRA [Suspect]
     Indication: RHEUMATOID ARTHRITIS
     Route: 058
     Dates: start: 20050101, end: 20080101
  5. LEVOTHYROXINE SODIUM [Concomitant]
     Indication: THYROID DISORDER
     Route: 048
  6. METHOTREXATE [Concomitant]
     Indication: RHEUMATOID ARTHRITIS
     Route: 048
     Dates: start: 20050101
  7. IODOTHERAPY [Concomitant]
  8. HYDROCHLOROTHIAZIDE [Concomitant]
     Route: 048
     Dates: start: 20110101
  9. CHESTNUT OF INDIA [Concomitant]
     Indication: CARDIOVASCULAR INSUFFICIENCY
     Route: 048
  10. HUMIRA [Suspect]
     Route: 058
  11. HYDROCHLOROTHIAZIDE [Concomitant]
     Indication: HYPERTENSION
     Dosage: 0.5 IN 24 HOURS
     Route: 048
     Dates: start: 20100101
  12. LEFLUNOMIDE [Concomitant]
     Indication: RHEUMATOID ARTHRITIS
     Route: 048
     Dates: start: 20050101
  13. METHIMAZOLE [Concomitant]
     Indication: HYPOTHYROIDISM
     Route: 048
     Dates: end: 20070101
  14. PROPRANOLOL [Concomitant]
     Indication: HYPERTENSION
     Route: 048
     Dates: start: 19800101, end: 20090101
  15. LOSARTAN POTASSIUM [Concomitant]
     Indication: HYPERTENSION
     Route: 048
     Dates: start: 20110101
  16. OMEPRAZOLE [Concomitant]
     Indication: GASTRITIS
     Route: 048

REACTIONS (12)
  - SPINAL DISORDER [None]
  - PAIN IN EXTREMITY [None]
  - GAIT DISTURBANCE [None]
  - HEADACHE [None]
  - INFLUENZA [None]
  - BONE EROSION [None]
  - OSTEOARTHRITIS [None]
  - DYSPNOEA [None]
  - PELVIC PAIN [None]
  - ARTHRALGIA [None]
  - LIMB ASYMMETRY [None]
  - FALL [None]
